FAERS Safety Report 7257020-1 (Version None)
Quarter: 2011Q1

REPORT INFORMATION
  Report Type: 
  Country: None (occurrence: None)
  Receive Date: 20110129
  Receipt Date: 20100719
  Transmission Date: 20110831
  Serious: No
  Sender: FDA-Public Use
  Company Number: US-ABBOTT-10P-163-0658511-00

PATIENT
  Age: 53 Year
  Sex: Male

DRUGS (4)
  1. LIADA [Concomitant]
     Indication: CROHN'S DISEASE
  2. PREDNISONE [Concomitant]
     Indication: CROHN'S DISEASE
  3. LIPITOR [Concomitant]
     Indication: BLOOD CHOLESTEROL
  4. HUMIRA [Suspect]
     Indication: PSORIASIS
     Dates: start: 20100501

REACTIONS (1)
  - INJECTION SITE PAIN [None]
